FAERS Safety Report 5197177-X (Version None)
Quarter: 2006Q4

REPORT INFORMATION
  Report Type: 
  Country: None (occurrence: None)
  Receive Date: 20061227
  Receipt Date: 20061215
  Transmission Date: 20070319
  Serious: Yes (Life-Threatening, Hospitalization, Disabling, Other)
  Sender: FDA-Public Use
  Company Number: 2006154306

PATIENT
  Age: 53 Year
  Sex: Male
  Weight: 85 kg

DRUGS (11)
  1. ATORVASTATIN CALCIUM [Suspect]
     Dosage: 80 MG (80 MG, 1 IN 1 D), ORAL
     Route: 048
     Dates: start: 20040101, end: 20061106
  2. FUCIDINE CAP [Suspect]
     Dosage: 1500 MG (500 MG, 3 IN 1 D), ORAL
     Route: 048
     Dates: start: 20061002
  3. AMITRIPTYLINE HCL [Concomitant]
  4. ASPIRIN [Concomitant]
  5. CIMETIDINE [Concomitant]
  6. CO-COMADOL (CODEINE PHOSPHATE, PARACETAMOL) [Concomitant]
  7. DICLOFENAC SODIUM [Concomitant]
  8. FLUOXETINE [Concomitant]
  9. GLICLAZIDE (GLICLAZIDE) [Concomitant]
  10. HYDROXYCHLOROQUINE SULFATE [Concomitant]
  11. LEVOTHYROXINE SODIUM [Concomitant]

REACTIONS (3)
  - DRUG INTERACTION [None]
  - RENAL FAILURE ACUTE [None]
  - RHABDOMYOLYSIS [None]
